FAERS Safety Report 5006123-0 (Version None)
Quarter: 2006Q1

REPORT INFORMATION
  Report Type: 
  Country: None (occurrence: None)
  Receive Date: 20060328
  Receipt Date: 20051216
  Transmission Date: 20060701
  Serious: No
  Sender: FDA-Public Use
  Company Number: 05P-163-0319746-00

PATIENT
  Age: 62 Year
  Sex: Female
  Weight: 68.0396 kg

DRUGS (5)
  1. HUMIRA [Suspect]
     Indication: RHEUMATOID ARTHRITIS
     Dosage: 40 MG, 1 IN 2 WK, SUBCUTANEOUS
     Route: 058
     Dates: start: 20050101, end: 20050701
  2. HYDROXYCHLOROQUINE PHOSPHATE [Concomitant]
  3. DICLOFENAC SODIUM [Concomitant]
  4. PREDNISONE [Concomitant]
  5. TIZANIDINE HYDROCHLORIDE [Concomitant]

REACTIONS (1)
  - BREAST CANCER [None]
